FAERS Safety Report 5229916-3 (Version None)
Quarter: 2007Q1

REPORT INFORMATION
  Report Type: 
  Country: None (occurrence: None)
  Receive Date: 20070206
  Receipt Date: 20061205
  Transmission Date: 20070707
  Serious: No
  Sender: FDA-Public Use
  Company Number: US-GLAXOSMITHKLINE-A0630449A

PATIENT
  Age: 56 Year
  Sex: Female

DRUGS (5)
  1. PAXIL [Suspect]
     Dosage: 20MG PER DAY
     Route: 048
     Dates: start: 20061116
  2. XANAX [Concomitant]
  3. LOVASTATIN [Concomitant]
  4. BACLOFEN [Concomitant]
  5. UNSPECIFIED MEDICATION [Concomitant]

REACTIONS (3)
  - ANXIETY [None]
  - GLOSSODYNIA [None]
  - HYPERAESTHESIA [None]
